FAERS Safety Report 14658639 (Version 1)
Quarter: 2018Q1

REPORT INFORMATION
  Report Type: Spontaneous
  Country: US (occurrence: US)
  Receive Date: 20180320
  Receipt Date: 20180320
  Transmission Date: 20180509
  Serious: Yes (Hospitalization, Other)
  Sender: FDA-Public Use
  Company Number: US-ASTELLAS-2018US012788

PATIENT
  Sex: Female

DRUGS (2)
  1. ETOPOSIDE. [Suspect]
     Active Substance: ETOPOSIDE
     Indication: DIFFUSE LARGE B-CELL LYMPHOMA
     Dosage: UNK UNK, UNKNOWN FREQ.
     Route: 065
  2. TACROLIMUS. [Suspect]
     Active Substance: TACROLIMUS
     Indication: HEART TRANSPLANT
     Dosage: UNK UNK, UNKNOWN FREQ.
     Route: 065

REACTIONS (18)
  - Epstein-Barr virus infection [Recovered/Resolved]
  - Post transplant lymphoproliferative disorder [Recovered/Resolved]
  - Fungal infection [Recovered/Resolved]
  - Transplant rejection [Recovered/Resolved]
  - Hypotension [Recovered/Resolved]
  - Cellulitis [Recovered/Resolved]
  - Tricuspid valve incompetence [Recovered/Resolved]
  - Immunosuppressant drug level decreased [Unknown]
  - Heart transplant rejection [Recovered/Resolved]
  - Dyspnoea [Recovered/Resolved]
  - Bacteraemia [Recovered/Resolved]
  - Acute myeloid leukaemia [Recovered/Resolved]
  - Right ventricular systolic pressure increased [Recovered/Resolved]
  - Ejection fraction decreased [Recovered/Resolved]
  - Diffuse large B-cell lymphoma [Recovered/Resolved]
  - Off label use [Unknown]
  - Mitral valve incompetence [Recovered/Resolved]
  - Oxygen saturation decreased [Recovered/Resolved]
